FAERS Safety Report 23689487 (Version 6)
Quarter: 2024Q2

REPORT INFORMATION
  Report Type: Spontaneous
  Country: US (occurrence: US)
  Receive Date: 20240331
  Receipt Date: 20240621
  Transmission Date: 20240716
  Serious: No
  Sender: FDA-Public Use
  Company Number: US-SA-SAC20240327000422

PATIENT
  Age: 51 Year
  Sex: Female
  Weight: 94 kg

DRUGS (12)
  1. DUPIXENT [Suspect]
     Active Substance: DUPILUMAB
     Indication: Infected skin ulcer
     Dosage: 600 MG, 1X
     Route: 058
     Dates: start: 20240101, end: 20240101
  2. DUPIXENT [Suspect]
     Active Substance: DUPILUMAB
     Indication: Fascial infection
     Dosage: 300 MG, QOW
     Route: 058
     Dates: start: 202401
  3. DUPIXENT [Suspect]
     Active Substance: DUPILUMAB
     Indication: Asthma
  4. DUPIXENT [Suspect]
     Active Substance: DUPILUMAB
     Indication: Illness
  5. TIZANIDINE HYDROCHLORIDE [Concomitant]
     Active Substance: TIZANIDINE HYDROCHLORIDE
  6. DULOXETINE HYDROCHLORIDE [Concomitant]
     Active Substance: DULOXETINE HYDROCHLORIDE
  7. LISINOPRIL [Concomitant]
     Active Substance: LISINOPRIL
  8. ADDERALL [Concomitant]
     Active Substance: AMPHETAMINE ASPARTATE\AMPHETAMINE SULFATE\DEXTROAMPHETAMINE SACCHARATE\DEXTROAMPHETAMINE SULFATE
  9. ESTRADIOL [Concomitant]
     Active Substance: ESTRADIOL
  10. OXYCODONE HYDROCHLORIDE [Concomitant]
     Active Substance: OXYCODONE HYDROCHLORIDE
  11. PREGABALIN [Concomitant]
     Active Substance: PREGABALIN
  12. IBUPROFEN [Concomitant]
     Active Substance: IBUPROFEN

REACTIONS (15)
  - Headache [Not Recovered/Not Resolved]
  - Visual impairment [Not Recovered/Not Resolved]
  - Condition aggravated [Not Recovered/Not Resolved]
  - Blister infected [Unknown]
  - Sinusitis [Not Recovered/Not Resolved]
  - Facial pain [Unknown]
  - Blister [Unknown]
  - Accidental exposure to product [Unknown]
  - Exposure via skin contact [Unknown]
  - Off label use [Unknown]
  - Injection site pain [Unknown]
  - Product preparation error [Unknown]
  - Rash [Unknown]
  - Dry skin [Unknown]
  - Pustule [Unknown]

NARRATIVE: CASE EVENT DATE: 20240101
